FAERS Safety Report 15760364 (Version 1)
Quarter: 2018Q4

REPORT INFORMATION
  Report Type: Spontaneous
  Country: US (occurrence: US)
  Receive Date: 20181226
  Receipt Date: 20181226
  Transmission Date: 20190205
  Serious: Yes (Hospitalization, Other)
  Sender: FDA-Public Use
  Company Number: US-ASTELLAS-2018US054537

PATIENT
  Age: 78 Year
  Sex: Male

DRUGS (2)
  1. XTANDI [Suspect]
     Active Substance: ENZALUTAMIDE
     Indication: PRODUCT USED FOR UNKNOWN INDICATION
     Route: 065
  2. CASODEX [Concomitant]
     Active Substance: BICALUTAMIDE
     Indication: PRODUCT USED FOR UNKNOWN INDICATION
     Dosage: UNK UNK, UNKNOWN FREQ.
     Route: 065

REACTIONS (12)
  - Blood pressure increased [Unknown]
  - Anxiety [Unknown]
  - Fatigue [Unknown]
  - Abnormal behaviour [Unknown]
  - Psychotic disorder [Unknown]
  - Hypoaesthesia [Recovering/Resolving]
  - Decreased appetite [Unknown]
  - Depression [Unknown]
  - Dry skin [Unknown]
  - Feeling hot [Unknown]
  - Hallucination [Unknown]
  - Flushing [Unknown]
